FAERS Safety Report 4407328-X (Version None)
Quarter: 2004Q3

REPORT INFORMATION
  Report Type: 
  Country: None (occurrence: None)
  Receive Date: 20040721
  Receipt Date: 20040709
  Transmission Date: 20050211
  Serious: Yes (Other)
  Sender: FDA-Public Use
  Company Number: 2004016572

PATIENT
  Age: 29 Year
  Sex: Female
  Weight: 79.3795 kg

DRUGS (3)
  1. ZANTAC 75 [Suspect]
     Indication: DYSPEPSIA
     Dosage: 1 TAB Q12H PRN, ORAL
     Route: 048
     Dates: start: 20040301, end: 20040524
  2. ZOLOFT [Concomitant]
  3. ACETAMINOPHEN [Concomitant]

REACTIONS (3)
  - DRUG EXPOSURE DURING PREGNANCY [None]
  - INDUCED LABOUR [None]
  - PRE-ECLAMPSIA [None]
